FAERS Safety Report 20967913 (Version 1)
Quarter: 2022Q2

REPORT INFORMATION
  Report Type: Spontaneous
  Country: US (occurrence: None)
  Receive Date: 20220616
  Receipt Date: 20220616
  Transmission Date: 20220721
  Serious: Yes (unspecified)
  Sender: FDA-Public Use
  Company Number: None

PATIENT
  Age: 67 Year
  Sex: Female
  Weight: 67.5 kg

DRUGS (2)
  1. HOMEOPATHICS [Suspect]
     Active Substance: HOMEOPATHICS
     Indication: Nasopharyngitis
     Dosage: FREQUENCY : DAILY;?OTHER ROUTE : NASAL SWAB;?
     Route: 050
     Dates: start: 20211029, end: 20211110
  2. Multi-Vitamin for Women [Concomitant]

REACTIONS (4)
  - Oropharyngeal pain [None]
  - Haematotympanum [None]
  - Lymphadenopathy [None]
  - Sensory disturbance [None]

NARRATIVE: CASE EVENT DATE: 20211101
